FAERS Safety Report 7800979-1 (Version None)
Quarter: 2011Q4

REPORT INFORMATION
  Report Type: 
  Country: None (occurrence: None)
  Receive Date: 20111007
  Receipt Date: 20110929
  Transmission Date: 20120403
  Serious: Yes (Hospitalization, Other)
  Sender: FDA-Public Use
  Company Number: GB-BIOGENIDEC-2010BI041072

PATIENT
  Age: 35 Year
  Sex: Female

DRUGS (4)
  1. METHYLPREDNISOLONE [Concomitant]
     Route: 042
  2. METHYLPREDNISOLONE [Concomitant]
     Route: 042
  3. METHYLPREDNISOLONE [Concomitant]
     Route: 042
  4. TYSABRI [Suspect]
     Indication: MULTIPLE SCLEROSIS
     Dates: start: 20100716, end: 20100913

REACTIONS (1)
  - MULTIPLE SCLEROSIS RELAPSE [None]
